FAERS Safety Report 4759185-X (Version None)
Quarter: 2005Q3

REPORT INFORMATION
  Report Type: 
  Country: None (occurrence: None)
  Receive Date: 20050831
  Receipt Date: 20050812
  Transmission Date: 20060218
  Serious: Yes (Hospitalization)
  Sender: FDA-Public Use
  Company Number: JP_050807203

PATIENT
  Age: 79 Year
  Sex: Female

DRUGS (2)
  1. EVISTA [Suspect]
     Indication: OSTEOPOROSIS POSTMENOPAUSAL
     Dosage: 60 MG/1 DAY
     Dates: start: 20050428
  2. PREDNISOLONE [Concomitant]

REACTIONS (3)
  - CATARACT [None]
  - CONCOMITANT DISEASE AGGRAVATED [None]
  - OEDEMA PERIPHERAL [None]
